FAERS Safety Report 20386898 (Version 4)
Quarter: 2022Q4

REPORT INFORMATION
  Report Type: Report from Study
  Country: CA (occurrence: CA)
  Receive Date: 20220127
  Receipt Date: 20221205
  Transmission Date: 20230112
  Serious: Yes (Other)
  Sender: FDA-Public Use
  Company Number: CA-JNJFOC-20220141833

PATIENT
  Sex: Female

DRUGS (1)
  1. REMICADE [Suspect]
     Active Substance: INFLIXIMAB
     Indication: Crohn^s disease
     Dosage: ON 20-JAN-2022, PATIENT RECEIVED 52ND INFUSION AT A DOSE OF 400MG OF REMICADE AND PARTIAL HARVEY BRA
     Route: 042
     Dates: start: 20120214

REACTIONS (3)
  - Crohn^s disease [Recovered/Resolved]
  - COVID-19 [Unknown]
  - Product dose omission issue [Unknown]
